FAERS Safety Report 6177344-9 (Version None)
Quarter: 2009Q2

REPORT INFORMATION
  Report Type: 
  Country: None (occurrence: None)
  Receive Date: 20090504
  Receipt Date: 20090424
  Transmission Date: 20091009
  Serious: Yes (Hospitalization)
  Sender: FDA-Public Use
  Company Number: US-BIOGENIDEC-2009BI012748

PATIENT
  Age: 39 Year
  Sex: Female

DRUGS (1)
  1. AVONEX [Suspect]
     Indication: MULTIPLE SCLEROSIS
     Route: 030
     Dates: start: 20050414

REACTIONS (7)
  - ABASIA [None]
  - DEHYDRATION [None]
  - DEPRESSION [None]
  - DRUG INEFFECTIVE [None]
  - INJECTION SITE PAIN [None]
  - POLYMENORRHOEA [None]
  - UTERINE LEIOMYOMA [None]
